FAERS Safety Report 5564151-0 (Version None)
Quarter: 2007Q4

REPORT INFORMATION
  Report Type: 
  Country: None (occurrence: None)
  Receive Date: 20071217
  Receipt Date: 20071205
  Transmission Date: 20080405
  Serious: Yes (Other)
  Sender: FDA-Public Use
  Company Number: US-PFIZER INC-2007103960

PATIENT
  Sex: Female
  Weight: 67.3 kg

DRUGS (1)
  1. CHANTIX [Suspect]
     Indication: SMOKING CESSATION THERAPY
     Dates: start: 20070901, end: 20071101

REACTIONS (5)
  - AMNESIA [None]
  - DEPRESSION [None]
  - HEADACHE [None]
  - MENTAL DISORDER [None]
  - SUICIDAL IDEATION [None]
